FAERS Safety Report 9671589 (Version 1)
Quarter: 2013Q4

REPORT INFORMATION
  Report Type: Spontaneous
  Country: US (occurrence: US)
  Receive Date: 20131106
  Receipt Date: 20131106
  Transmission Date: 20140711
  Serious: No
  Sender: FDA-Public Use
  Company Number: US-PFIZER INC-2013314732

PATIENT
  Age: 43 Year
  Sex: Female
  Weight: 64.4 kg

DRUGS (4)
  1. CELEBREX [Suspect]
     Indication: SYNOVIAL CYST
     Dosage: 200 MG, DAILY
     Dates: start: 2013
  2. CELEBREX [Suspect]
     Indication: ARTHRALGIA
  3. NAPROXEN SODIUM [Suspect]
     Indication: SYNOVIAL CYST
     Dosage: 375 MG, 2X/DAY
     Dates: start: 2013, end: 2013
  4. NAPROXEN SODIUM [Suspect]
     Indication: ARTHRALGIA

REACTIONS (1)
  - Rash [Unknown]
